FAERS Safety Report 7984225-4 (Version None)
Quarter: 2011Q4

REPORT INFORMATION
  Report Type: 
  Country: None (occurrence: None)
  Receive Date: 20111216
  Receipt Date: 20111208
  Transmission Date: 20120403
  Serious: Yes (Other)
  Sender: FDA-Public Use
  Company Number: US-BAYER-2011-118328

PATIENT
  Age: 28 Year
  Sex: Female

DRUGS (1)
  1. MIRENA [Suspect]
     Indication: CONTRACEPTION
     Dosage: 20 ?G/D, CONT
     Route: 015
     Dates: start: 20110801, end: 20111001

REACTIONS (7)
  - BACK PAIN [None]
  - HEADACHE [None]
  - ABDOMINAL PAIN [None]
  - GENITAL HAEMORRHAGE [None]
  - NAUSEA [None]
  - MALAISE [None]
  - FEELING ABNORMAL [None]
